FAERS Safety Report 8209535-7 (Version None)
Quarter: 2012Q1

REPORT INFORMATION
  Report Type: 
  Country: None (occurrence: None)
  Receive Date: 20120314
  Receipt Date: 20120312
  Transmission Date: 20120608
  Serious: Yes (Hospitalization)
  Sender: FDA-Public Use
  Company Number: US-TEVA-327582USA

PATIENT
  Sex: Female

DRUGS (4)
  1. GUANFACINE HYDROCHLORIDE [Concomitant]
  2. AMPHETAMINE AND DEXTROAMPHETAMINE SALTS [Suspect]
  3. ESTROGEN NOS [Concomitant]
  4. CHANTIX [Concomitant]

REACTIONS (2)
  - CHEST PAIN [None]
  - DYSPNOEA [None]
